FAERS Safety Report 25240263 (Version 1)
Quarter: 2025Q2

REPORT INFORMATION
  Report Type: Spontaneous
  Country: US (occurrence: None)
  Receive Date: 20250425
  Receipt Date: 20250425
  Transmission Date: 20250716
  Serious: No
  Sender: FDA-CTU
  Company Number: None

PATIENT

DRUGS (12)
  1. VYALEV [Suspect]
     Active Substance: FOSCARBIDOPA\FOSLEVODOPA
     Indication: Dyskinesia
     Dates: start: 20250205, end: 20250421
  2. NEOSPORIN [Concomitant]
     Active Substance: BACITRACIN ZINC\NEOMYCIN SULFATE\POLYMYXIN B SULFATE
  3. Sinimet [Concomitant]
  4. LEXAPRO [Concomitant]
     Active Substance: ESCITALOPRAM OXALATE
  5. Cyclobenazine [Concomitant]
  6. LORATADINE [Concomitant]
     Active Substance: LORATADINE
  7. TEMAZEPAM [Concomitant]
     Active Substance: TEMAZEPAM
  8. CRANBERRY [Concomitant]
     Active Substance: CRANBERRY
  9. D3 5000 units [Concomitant]
  10. VITAMINS [Concomitant]
     Active Substance: VITAMINS
  11. MAGNESIUM [Concomitant]
     Active Substance: MAGNESIUM
  12. MIRALAX [Concomitant]
     Active Substance: POLYETHYLENE GLYCOL 3350

REACTIONS (13)
  - Injection site infection [None]
  - Injection site pruritus [None]
  - Injection site pain [None]
  - Influenza [None]
  - Bradycardia [None]
  - Syncope [None]
  - Red blood cell count decreased [None]
  - Haemoglobin decreased [None]
  - Haematocrit decreased [None]
  - Globulins decreased [None]
  - Dystonia [None]
  - Foot fracture [None]
  - Weight bearing difficulty [None]
